FAERS Safety Report 7720361-5 (Version None)
Quarter: 2011Q3

REPORT INFORMATION
  Report Type: 
  Country: None (occurrence: None)
  Receive Date: 20110831
  Receipt Date: 20110818
  Transmission Date: 20111222
  Serious: Yes (Other)
  Sender: FDA-Public Use
  Company Number: JP-JNJFOC-20110809992

PATIENT
  Age: 64 Year
  Sex: Male

DRUGS (6)
  1. BLONANSERIN [Concomitant]
     Route: 048
  2. BIPERIDEN HYDROCHLORIDE TAB [Concomitant]
     Route: 065
  3. RISPERDAL [Suspect]
     Route: 048
  4. FLUNITRAZEPAM [Concomitant]
     Route: 065
  5. RISPERDAL [Suspect]
     Indication: PRODUCT USED FOR UNKNOWN INDICATION
     Route: 048
  6. NITRAZEPAM [Concomitant]
     Route: 048

REACTIONS (5)
  - MALAISE [None]
  - DECUBITUS ULCER [None]
  - EXTRAPYRAMIDAL DISORDER [None]
  - SOMNOLENCE [None]
  - PSYCHIATRIC SYMPTOM [None]
